FAERS Safety Report 16462425 (Version 1)
Quarter: 2019Q2

REPORT INFORMATION
  Report Type: Spontaneous
  Country: ES (occurrence: ES)
  Receive Date: 20190621
  Receipt Date: 20190621
  Transmission Date: 20190711
  Serious: Yes (Other)
  Sender: FDA-Public Use
  Company Number: ES-PFIZER INC-2019261699

PATIENT
  Age: 25 Year
  Sex: Female
  Weight: 48.5 kg

DRUGS (14)
  1. VORICONAZOL [Concomitant]
     Active Substance: VORICONAZOLE
     Indication: ANTIBIOTIC PROPHYLAXIS
     Dosage: 200 MG, 2X/DAY
     Route: 048
     Dates: start: 20190109
  2. DEXKETOPROFEN [Concomitant]
     Active Substance: DEXKETOPROFEN
     Indication: ANALGESIC THERAPY
     Dosage: 50 MG, 3X/DAY
     Route: 042
     Dates: start: 20190114
  3. MEROPENEM. [Concomitant]
     Active Substance: MEROPENEM
     Indication: ANTIBIOTIC PROPHYLAXIS
     Dosage: 1 G, 3X/DAY
     Route: 042
     Dates: start: 20190114
  4. PARACETAMOL [Concomitant]
     Active Substance: ACETAMINOPHEN
     Indication: PREMEDICATION
     Dosage: 1 G, 4X/DAY
     Route: 042
     Dates: start: 20190104
  5. ONDANSETRON [Concomitant]
     Active Substance: ONDANSETRON
     Indication: PREMEDICATION
     Dosage: 8 MG, 3X/DAY
     Route: 042
     Dates: start: 20190110
  6. METOCLOPRAMIDE. [Concomitant]
     Active Substance: METOCLOPRAMIDE
     Indication: PREMEDICATION
     Dosage: 10 MG, 3X/DAY
     Route: 042
     Dates: start: 20190110
  7. ZAVEDOS [Suspect]
     Active Substance: IDARUBICIN
     Indication: ACUTE MYELOID LEUKAEMIA
     Dosage: 18 MG, 1X/DAY (1 INDUCTION)
     Route: 042
     Dates: start: 20190110, end: 20190112
  8. CITARABINA ACCORD [Suspect]
     Active Substance: CYTARABINE
     Indication: ACUTE MYELOID LEUKAEMIA
     Dosage: 300 MG, 1X/DAY (1 INDUCTION FOR 7 DAYS)
     Route: 042
     Dates: start: 20190110, end: 20190116
  9. LEVOFLOXACINE [LEVOFLOXACIN] [Concomitant]
     Active Substance: LEVOFLOXACIN
     Indication: ANTIBIOTIC PROPHYLAXIS
     Dosage: 500 MG, 1X/DAY (500MG /24H)
     Route: 048
     Dates: start: 20190109, end: 20190117
  10. OMEPRAZOLE. [Concomitant]
     Active Substance: OMEPRAZOLE
     Indication: PREMEDICATION
     Dosage: 40 MG, 1X/DAY
     Route: 042
     Dates: start: 20190110
  11. VALACICLOVIR [Concomitant]
     Active Substance: VALACYCLOVIR HYDROCHLORIDE
     Indication: ANTIBIOTIC PROPHYLAXIS
     Dosage: 1 G, 2X/DAY
     Route: 048
     Dates: start: 20190109
  12. ALLOPURINOL. [Concomitant]
     Active Substance: ALLOPURINOL
     Indication: PROPHYLAXIS
     Dosage: 300 MG, 1X/DAY
     Route: 048
     Dates: start: 20190109
  13. LABETALOL [Concomitant]
     Active Substance: LABETALOL\LABETALOL HYDROCHLORIDE
     Indication: PREVIOUS CAESAREAN SECTION
     Dosage: 100 MG, 2X/DAY
     Route: 048
     Dates: start: 20190104
  14. FUROSEMIDE. [Concomitant]
     Active Substance: FUROSEMIDE
     Indication: PREMEDICATION
     Dosage: 40 MG, 1X/DAY
     Route: 042
     Dates: start: 20190110

REACTIONS (1)
  - Perichondritis [Recovered/Resolved]

NARRATIVE: CASE EVENT DATE: 20190114
